FAERS Safety Report 16371739 (Version 1)
Quarter: 2019Q2

REPORT INFORMATION
  Report Type: Spontaneous
  Country: US (occurrence: US)
  Receive Date: 20190530
  Receipt Date: 20190530
  Transmission Date: 20190711
  Serious: No
  Sender: FDA-Public Use
  Company Number: US-PFIZER INC-2017155867

PATIENT
  Age: 10 Year
  Sex: Female
  Weight: 22 kg

DRUGS (5)
  1. GENOTROPIN [Suspect]
     Active Substance: SOMATROPIN
     Indication: CORNELIA DE LANGE SYNDROME
     Dosage: 1 MG, DAILY
     Route: 030
     Dates: start: 201612
  2. GENOTROPIN [Suspect]
     Active Substance: SOMATROPIN
     Dosage: 1.2 ML, 1X/DAY (ONCE A DAY IN THE LEG EVERY NIGHT)
     Route: 058
     Dates: start: 201612
  3. GENOTROPIN [Suspect]
     Active Substance: SOMATROPIN
     Dosage: UNK
  4. RITALIN [Concomitant]
     Active Substance: METHYLPHENIDATE HYDROCHLORIDE
     Dosage: 20 MG, UNK
  5. METHYLPHENIDATE. [Concomitant]
     Active Substance: METHYLPHENIDATE
     Indication: ATTENTION DEFICIT/HYPERACTIVITY DISORDER
     Dosage: 20 MG, 1X/DAY
     Route: 048

REACTIONS (4)
  - Device use issue [Unknown]
  - Alopecia [Not Recovered/Not Resolved]
  - Product use in unapproved indication [Unknown]
  - Incorrect route of product administration [Unknown]

NARRATIVE: CASE EVENT DATE: 201612
